FAERS Safety Report 11392381 (Version 2)
Quarter: 2015Q3

REPORT INFORMATION
  Report Type: Spontaneous
  Country: DE (occurrence: DE)
  Receive Date: 20150818
  Receipt Date: 20150908
  Transmission Date: 20151125
  Serious: Yes (Hospitalization, Other)
  Sender: FDA-Public Use
  Company Number: DE-AMGEN-DEUSP2015082084

PATIENT
  Age: 82 Year
  Sex: Female

DRUGS (1)
  1. PROLIA [Suspect]
     Active Substance: DENOSUMAB
     Indication: PRODUCT USED FOR UNKNOWN INDICATION
     Dosage: 60 MG, Q6MO
     Route: 065
     Dates: start: 201307

REACTIONS (5)
  - Malaise [Not Recovered/Not Resolved]
  - Dizziness [Unknown]
  - Catheter placement [Unknown]
  - Angiopathy [Unknown]
  - Stent placement [Unknown]

NARRATIVE: CASE EVENT DATE: 201505
